FAERS Safety Report 7598291-1 (Version None)
Quarter: 2011Q3

REPORT INFORMATION
  Report Type: 
  Country: None (occurrence: None)
  Receive Date: 20110708
  Receipt Date: 20110704
  Transmission Date: 20111222
  Serious: Yes (Hospitalization, Disabling)
  Sender: FDA-Public Use
  Company Number: JP-ABBOTT-10P-087-0643665-00

PATIENT
  Sex: Male
  Weight: 71 kg

DRUGS (12)
  1. CLARITHROMYCIN [Suspect]
     Indication: COUGH
  2. TRANSAMIN [Concomitant]
     Indication: COUGH
  3. TRANSAMIN [Concomitant]
     Indication: NASOPHARYNGITIS
     Dosage: 750 MG DAILY
     Route: 048
     Dates: start: 20100401, end: 20100408
  4. PELEX [Suspect]
     Indication: NASOPHARYNGITIS
     Route: 048
     Dates: start: 20100401
  5. ANTOBRON [Concomitant]
     Indication: NASOPHARYNGITIS
     Dosage: 45 MG DAILY
     Route: 048
     Dates: start: 20100401, end: 20100405
  6. MUCODYNE [Concomitant]
     Indication: NASOPHARYNGITIS
     Route: 048
     Dates: start: 20100406, end: 20100408
  7. MUCODYNE [Concomitant]
     Indication: COUGH
  8. MEDICON [Concomitant]
     Indication: NASOPHARYNGITIS
     Dosage: 45 MG DAILY
     Route: 048
     Dates: start: 20100406, end: 20100408
  9. MEDICON [Concomitant]
     Indication: COUGH
  10. ASTOMIN [Concomitant]
     Indication: NASOPHARYNGITIS
     Route: 048
     Dates: start: 20100401
  11. CLARITHROMYCIN [Suspect]
     Indication: PRODUCT USED FOR UNKNOWN INDICATION
     Route: 048
     Dates: start: 20100406, end: 20100408
  12. ECARD LD TAB [Concomitant]
     Indication: HYPERTENSION
     Dosage: 4/6.25MG
     Route: 048
     Dates: start: 20100428, end: 20100430

REACTIONS (1)
  - TUBULOINTERSTITIAL NEPHRITIS [None]
